FAERS Safety Report 19578880 (Version 4)
Quarter: 2021Q3

REPORT INFORMATION
  Report Type: Spontaneous
  Country: PT (occurrence: PT)
  Receive Date: 20210719
  Receipt Date: 20210924
  Transmission Date: 20211014
  Serious: Yes (Hospitalization, Other)
  Sender: FDA-Public Use
  Company Number: PT-GLAXOSMITHKLINE-PT2019236211

PATIENT
  Age: 20 Year
  Sex: Male

DRUGS (4)
  1. ASPIRIN. [Suspect]
     Active Substance: ASPIRIN
     Indication: PRODUCT USED FOR UNKNOWN INDICATION
     Dosage: UNK
     Route: 065
  2. IBUPROFEN. [Suspect]
     Active Substance: IBUPROFEN
     Indication: ASTHMA
     Dosage: UNK
     Route: 065
  3. FORMOTEROL [Suspect]
     Active Substance: FORMOTEROL
     Indication: ASTHMA
     Dosage: 4.5 UG, SOS
     Route: 065
  4. BUDESONIDE. [Suspect]
     Active Substance: BUDESONIDE
     Indication: ASTHMA
     Dosage: 160 UG, SOS

REACTIONS (15)
  - Anaphylactic reaction [Recovered/Resolved]
  - Aspirin-exacerbated respiratory disease [Unknown]
  - Eosinophilia [Unknown]
  - Off label use [Unknown]
  - Nasal obstruction [Recovering/Resolving]
  - Nasal polyps [Unknown]
  - Asthma [Unknown]
  - Bronchial disorder [Recovering/Resolving]
  - Anosmia [Not Recovered/Not Resolved]
  - Condition aggravated [Unknown]
  - Drug hypersensitivity [Recovered/Resolved]
  - Nasal turbinate hypertrophy [Unknown]
  - Drug intolerance [Unknown]
  - Sinusitis [Unknown]
  - Taste disorder [Not Recovered/Not Resolved]
